FAERS Safety Report 8438425-X (Version None)
Quarter: 2012Q2

REPORT INFORMATION
  Report Type: 
  Country: None (occurrence: None)
  Receive Date: 20120614
  Receipt Date: 20120606
  Transmission Date: 20120825
  Serious: Yes (Hospitalization)
  Sender: FDA-Public Use
  Company Number: US-RB-041261-12

PATIENT
  Sex: Male

DRUGS (1)
  1. SUBOXONE [Suspect]
     Indication: DRUG DEPENDENCE
     Route: 060
     Dates: start: 20101001, end: 20120507

REACTIONS (9)
  - WEIGHT DECREASED [None]
  - INSOMNIA [None]
  - HOT FLUSH [None]
  - ANXIETY [None]
  - ADRENAL INSUFFICIENCY [None]
  - PILOERECTION [None]
  - DRUG WITHDRAWAL SYNDROME [None]
  - MUSCLE ATROPHY [None]
  - DEPRESSION [None]
